FAERS Safety Report 25305353 (Version 1)
Quarter: 2025Q2

REPORT INFORMATION
  Report Type: Spontaneous
  Country: US (occurrence: None)
  Receive Date: 20250513
  Receipt Date: 20250513
  Transmission Date: 20250717
  Serious: No
  Sender: FDA-CTU
  Company Number: None

PATIENT
  Age: 85 Year
  Sex: Male
  Weight: 91 kg

DRUGS (1)
  1. EMPAGLIFLOZIN [Suspect]
     Active Substance: EMPAGLIFLOZIN
     Indication: Diabetes mellitus
     Dosage: FREQUENCY : DAILY;?
     Route: 048
     Dates: start: 20231024, end: 20240118

REACTIONS (6)
  - Urinary tract infection [None]
  - Bacteraemia [None]
  - Hyperglycaemia [None]
  - Heart rate increased [None]
  - Blood pressure increased [None]
  - Enterobacter test positive [None]

NARRATIVE: CASE EVENT DATE: 20240118
